FAERS Safety Report 11867217 (Version 2)
Quarter: 2017Q2

REPORT INFORMATION
  Report Type: Spontaneous
  Country: US (occurrence: US)
  Receive Date: 20151224
  Receipt Date: 20170615
  Transmission Date: 20170829
  Serious: Yes (Hospitalization)
  Sender: FDA-Public Use
  Company Number: US-ELI_LILLY_AND_COMPANY-US201512005742

PATIENT
  Sex: Female

DRUGS (4)
  1. HUMALOG [Suspect]
     Active Substance: INSULIN LISPRO
     Indication: TYPE 2 DIABETES MELLITUS
     Dosage: UNK, UNKNOWN
     Route: 065
  2. TRULICITY [Suspect]
     Active Substance: DULAGLUTIDE
     Dosage: 1.5 MG, WEEKLY (1/W)
     Route: 065
  3. LEVEMIR [Concomitant]
     Active Substance: INSULIN DETEMIR
     Indication: PRODUCT USED FOR UNKNOWN INDICATION
  4. TRULICITY [Suspect]
     Active Substance: DULAGLUTIDE
     Indication: TYPE 2 DIABETES MELLITUS
     Dosage: 0.75 MG, WEEKLY (1/W)
     Route: 065

REACTIONS (17)
  - Arthritis [Recovering/Resolving]
  - Visual impairment [Unknown]
  - Asthma [Recovering/Resolving]
  - Injection site macule [Unknown]
  - Hypertension [Recovering/Resolving]
  - Feeling abnormal [Unknown]
  - Dyspnoea [Unknown]
  - Renal disorder [Recovering/Resolving]
  - Weight decreased [Unknown]
  - Diabetes mellitus [Unknown]
  - Fatigue [Unknown]
  - Decreased appetite [Unknown]
  - Drug dose omission [Unknown]
  - Drug ineffective [Unknown]
  - Sacroiliitis [Recovering/Resolving]
  - Blood cholesterol increased [Unknown]
  - Glycosylated haemoglobin increased [Unknown]

NARRATIVE: CASE EVENT DATE: 2015
